FAERS Safety Report 8200545-2 (Version None)
Quarter: 2012Q1

REPORT INFORMATION
  Report Type: 
  Country: None (occurrence: None)
  Receive Date: 20120302
  Receipt Date: 20120224
  Transmission Date: 20120608
  Serious: Yes (Other)
  Sender: FDA-Public Use
  Company Number: 2011028550

PATIENT
  Age: 55 Year
  Sex: Female
  Weight: 89.3586 kg

DRUGS (21)
  1. HIZENTRA [Suspect]
  2. HIZENTRA [Suspect]
  3. PACERONE [Concomitant]
  4. THIAMINE HCL [Concomitant]
  5. XANAX [Concomitant]
  6. VENLAFAXINE [Concomitant]
  7. RIBOFLAVIN CAP [Concomitant]
  8. HIZENTRA [Suspect]
  9. PREDNISONE TAB [Concomitant]
  10. NASONEX [Concomitant]
  11. L-CARNITINE (LEVOCARNITINE) [Concomitant]
  12. KAPIDEX (DRUGS FOR FUNCTIONAL GASTROINTEST, DISORDERS) [Concomitant]
  13. HIZENTRA [Suspect]
     Indication: IMMUNODEFICIENCY COMMON VARIABLE
     Dosage: SEE IMAGE
     Route: 058
     Dates: start: 20110207
  14. HIZENTRA [Suspect]
  15. METHOTREXATE [Concomitant]
  16. RITUXAN [Concomitant]
  17. XOPENEX [Concomitant]
  18. METOPROLOL TARTRATE [Concomitant]
  19. RELAFEN [Concomitant]
  20. TRIGLIDE [Concomitant]
  21. MESTINON [Concomitant]

REACTIONS (7)
  - FLUSHING [None]
  - URINARY TRACT INFECTION [None]
  - FATIGUE [None]
  - PAIN [None]
  - RESPIRATORY TRACT INFECTION [None]
  - DYSPNOEA [None]
  - TENDERNESS [None]
